FAERS Safety Report 6302388-3 (Version None)
Quarter: 2009Q3

REPORT INFORMATION
  Report Type: 
  Country: None (occurrence: None)
  Receive Date: 20090810
  Receipt Date: 20090805
  Transmission Date: 20100115
  Serious: Yes (Life-Threatening)
  Sender: FDA-Public Use
  Company Number: PHHY2009CA32874

PATIENT
  Sex: Female

DRUGS (7)
  1. COMTAN [Suspect]
     Indication: PARKINSON'S DISEASE
     Dosage: 200 MG, QID
     Route: 048
  2. AMANTADINE HCL [Concomitant]
     Dosage: 100 MG ONCE A DAY
  3. CARBIDOPA AND LEVODOPA [Concomitant]
     Dosage: 1.5 TABLETS 5 TIMES A DAY
  4. PANTOPRAZOLE SODIUM [Concomitant]
     Dosage: 40 MG ONCE A DAY
  5. QUETIAPINE FUMARATE [Concomitant]
     Dosage: 1-2 TABLETS AT BEDTIME AS NEEDED
  6. METOPROLOL TARTRATE [Concomitant]
     Dosage: 25 MG, BID
  7. COUMADIN [Concomitant]
     Dosage: 5 MG ONCE A DAY

REACTIONS (1)
  - CHOKING [None]
